FAERS Safety Report 10157096 (Version 1)
Quarter: 2014Q2

REPORT INFORMATION
  Report Type: Report from Study
  Country: US (occurrence: US)
  Receive Date: 20140507
  Receipt Date: 20140507
  Transmission Date: 20141212
  Serious: Yes (Other)
  Sender: FDA-Public Use
  Company Number: US-SA-2014SA055513

PATIENT
  Sex: Female

DRUGS (1)
  1. LOVENOX [Suspect]
     Indication: CARDIOVASCULAR DISORDER
     Route: 065

REACTIONS (2)
  - Myocardial infarction [Unknown]
  - Incorrect dose administered [Unknown]
